FAERS Safety Report 9788281 (Version 2)
Quarter: 2014Q1

REPORT INFORMATION
  Report Type: Spontaneous
  Country: BR (occurrence: BR)
  Receive Date: 20131230
  Receipt Date: 20140110
  Transmission Date: 20141002
  Serious: Yes (Other)
  Sender: FDA-Public Use
  Company Number: BR-AMGEN-BRASP2013090796

PATIENT
  Age: 61 Year
  Sex: Female
  Weight: 41 kg

DRUGS (1)
  1. ENBREL [Suspect]
     Indication: RHEUMATOID ARTHRITIS
     Dosage: 50 MG, ONCE WEEKLY
     Route: 058
     Dates: start: 2011, end: 201311

REACTIONS (3)
  - Neoplasm [Unknown]
  - Pain [Not Recovered/Not Resolved]
  - Rheumatic disorder [Not Recovered/Not Resolved]
